FAERS Safety Report 14926074 (Version 3)
Quarter: 2019Q4

REPORT INFORMATION
  Report Type: Report from Study
  Country: US (occurrence: US)
  Receive Date: 20180522
  Receipt Date: 20191018
  Transmission Date: 20200122
  Serious: Yes (Hospitalization, Other)
  Sender: FDA-Public Use
  Company Number: US-ROCHE-1321635

PATIENT
  Age: 12 Year
  Sex: Female
  Weight: 34.9 kg

DRUGS (3)
  1. BEVACIZUMAB. [Suspect]
     Active Substance: BEVACIZUMAB
     Indication: GLIOBLASTOMA MULTIFORME
     Dosage: 4TH COURSE: TOTAL DOSE ADMINISTERED WAS 775 MG, LAST DOSE ADMINISTERED ON 15/OCT/2013?5TH COURSE: TO
     Route: 042
     Dates: start: 20130509
  2. TEMOZOLOMIDE. [Suspect]
     Active Substance: TEMOZOLOMIDE
     Indication: GLIOBLASTOMA MULTIFORME
     Dosage: 4TH COURSE:TOTAL DOSE ADMINISTERED WAS 1250 MG, LAST DOSE ADMINISTERED ON 05/OCT/2013?5TH COURSE: TO
     Route: 048
     Dates: start: 20130509
  3. VORINOSTAT [Suspect]
     Active Substance: VORINOSTAT
     Indication: GLIOBLASTOMA MULTIFORME
     Dosage: LAST ADMINISTERED ON: 18/JUN/2013 (TOTAL DOSE ADMINISTERED THIS COURSE: 6000 MG), FREQUENCY EVERY DA
     Route: 048
     Dates: start: 20130509

REACTIONS (7)
  - Febrile neutropenia [Not Recovered/Not Resolved]
  - Weight decreased [Not Recovered/Not Resolved]
  - White blood cell count decreased [Not Recovered/Not Resolved]
  - Hyperuricaemia [Recovered/Resolved]
  - Optic nerve disorder [Not Recovered/Not Resolved]
  - Platelet count decreased [Not Recovered/Not Resolved]
  - Decreased appetite [Recovered/Resolved]

NARRATIVE: CASE EVENT DATE: 20131024
